FAERS Safety Report 11034371 (Version 1)
Quarter: 2015Q2

REPORT INFORMATION
  Report Type: Spontaneous
  Country: US (occurrence: US)
  Receive Date: 20150415
  Receipt Date: 20150415
  Transmission Date: 20150821
  Serious: No
  Sender: FDA-Public Use
  Company Number: US-GILEAD-2015-0147492

PATIENT
  Age: 31 Year
  Sex: Male

DRUGS (1)
  1. HARVONI [Suspect]
     Active Substance: LEDIPASVIR\SOFOSBUVIR
     Indication: CHRONIC HEPATITIS C
     Dosage: 1 DF, QD
     Route: 048
     Dates: start: 20150319, end: 20150404

REACTIONS (3)
  - Oropharyngeal pain [Unknown]
  - Pain [Unknown]
  - Pain of skin [Unknown]

NARRATIVE: CASE EVENT DATE: 20150326
